FAERS Safety Report 9531826 (Version 1)
Quarter: 2013Q3

REPORT INFORMATION
  Report Type: Spontaneous
  Country: US (occurrence: None)
  Receive Date: 20130917
  Receipt Date: 20130917
  Transmission Date: 20140515
  Serious: Yes (Life-Threatening)
  Sender: FDA-Public Use
  Company Number: None

PATIENT
  Age: 64 Year
  Sex: Male
  Weight: 92 kg

DRUGS (3)
  1. IBUPROFEN [Suspect]
     Indication: TOOTH ABSCESS
     Route: 048
  2. AMOXICILLIN [Concomitant]
  3. GARLIC SUPPLEMENTS [Concomitant]

REACTIONS (7)
  - Dizziness [None]
  - Presyncope [None]
  - Fall [None]
  - Melaena [None]
  - Anaemia [None]
  - Gastric ulcer [None]
  - Duodenal ulcer [None]
